FAERS Safety Report 18762070 (Version 1)
Quarter: 2021Q1

REPORT INFORMATION
  Report Type: Spontaneous
  Country: US (occurrence: US)
  Receive Date: 20210120
  Receipt Date: 20210120
  Transmission Date: 20210419
  Serious: No
  Sender: FDA-Public Use
  Company Number: US-BAYER-2021-026055

PATIENT
  Age: 30 Year
  Sex: Female
  Weight: 58.96 kg

DRUGS (2)
  1. ESCITALOPRAM [Concomitant]
     Active Substance: ESCITALOPRAM OXALATE
     Dosage: 10 MG, QD
     Route: 048
  2. MIRENA [Suspect]
     Active Substance: LEVONORGESTREL
     Dosage: 20  ?G PER DAY CONTINUOUSLY
     Route: 015
     Dates: end: 20200924

REACTIONS (2)
  - Device expulsion [Recovered/Resolved]
  - Menstruation irregular [Not Recovered/Not Resolved]

NARRATIVE: CASE EVENT DATE: 202009
